FAERS Safety Report 9126059 (Version 8)
Quarter: 2015Q2

REPORT INFORMATION
  Report Type: Spontaneous
  Country: US (occurrence: US)
  Receive Date: 20130117
  Receipt Date: 20150406
  Transmission Date: 20150821
  Serious: Yes (Hospitalization, Disabling, Other)
  Sender: FDA-Public Use
  Company Number: US-009507513-1301USA005866

PATIENT
  Sex: Male

DRUGS (2)
  1. PROPECIA [Suspect]
     Active Substance: FINASTERIDE
     Dosage: 1 UNK, UNK
     Route: 048
     Dates: start: 20120207, end: 20120602
  2. PROPECIA [Suspect]
     Active Substance: FINASTERIDE
     Indication: ALOPECIA
     Dosage: 1 MG, QD
     Route: 048
     Dates: start: 20050514, end: 20080819

REACTIONS (17)
  - Varicose vein [Unknown]
  - Gastrooesophageal reflux disease [Unknown]
  - Abdominal pain [Unknown]
  - Depression [Unknown]
  - Emotional distress [Unknown]
  - Anxiety [Unknown]
  - Muscle rupture [Unknown]
  - Erectile dysfunction [Not Recovered/Not Resolved]
  - Marital problem [Unknown]
  - Eczema [Unknown]
  - Gynaecomastia [Unknown]
  - Hypertension [Unknown]
  - Chest discomfort [Unknown]
  - Dyslipidaemia [Unknown]
  - Colectomy [Unknown]
  - Sexual dysfunction [Unknown]
  - Self esteem decreased [Unknown]

NARRATIVE: CASE EVENT DATE: 2005
